FAERS Safety Report 9498999 (Version 1)
Quarter: 2013Q3

REPORT INFORMATION
  Report Type: Spontaneous
  Country: US (occurrence: US)
  Receive Date: 20130904
  Receipt Date: 20130904
  Transmission Date: 20140515
  Serious: Yes (Hospitalization)
  Sender: FDA-Public Use
  Company Number: US-B.I. PHARMACEUTICALS,INC./RIDGEFIELD-2013-BI-26964BP

PATIENT
  Age: 82 Year
  Sex: Female
  Weight: 49 kg

DRUGS (7)
  1. PRADAXA [Suspect]
     Indication: ATRIAL FIBRILLATION
     Dosage: 150 MG
     Route: 048
     Dates: start: 201207
  2. DILTIAZEM [Concomitant]
     Indication: HYPERTENSION
     Dosage: FORMULATION: CAPLET
     Route: 048
  3. LASIX [Concomitant]
     Indication: FLUID RETENTION
     Dosage: 20 MG
     Route: 048
  4. LIPITOR [Concomitant]
     Indication: BLOOD CHOLESTEROL INCREASED
     Dosage: 20 MG
     Route: 048
  5. METFORMIN [Concomitant]
     Indication: TYPE 2 DIABETES MELLITUS
     Dosage: 2000 MG
     Route: 048
  6. LORAZEPAM [Concomitant]
     Indication: ANXIETY
     Dosage: 0.5 MG
     Route: 048
  7. REMERON [Concomitant]
     Indication: DEPRESSION
     Route: 048

REACTIONS (1)
  - Gastrointestinal necrosis [Recovered/Resolved]
